FAERS Safety Report 6424675-0 (Version None)
Quarter: 2009Q4

REPORT INFORMATION
  Report Type: 
  Country: None (occurrence: None)
  Receive Date: 20091029
  Receipt Date: 20091021
  Transmission Date: 20100525
  Serious: Yes (Hospitalization, Other)
  Sender: FDA-Public Use
  Company Number: 2008JP005078

PATIENT
  Age: 2 Year
  Sex: Female
  Weight: 10.7 kg

DRUGS (11)
  1. PROGRAF [Suspect]
     Indication: RENAL TRANSPLANT
     Dosage: 2 MG, BID, ORAL ; 3.6 MG, /D, ORAL ; 3.2 MG, /D, ORAL ; 2.8 MG, /D, ORAL
     Route: 048
     Dates: start: 20070904, end: 20080420
  2. PROGRAF [Suspect]
     Indication: RENAL TRANSPLANT
     Dosage: 2 MG, BID, ORAL ; 3.6 MG, /D, ORAL ; 3.2 MG, /D, ORAL ; 2.8 MG, /D, ORAL
     Route: 048
     Dates: start: 20080421, end: 20080508
  3. PROGRAF [Suspect]
     Indication: RENAL TRANSPLANT
     Dosage: 2 MG, BID, ORAL ; 3.6 MG, /D, ORAL ; 3.2 MG, /D, ORAL ; 2.8 MG, /D, ORAL
     Route: 048
     Dates: start: 20080509, end: 20080527
  4. PROGRAF [Suspect]
     Indication: RENAL TRANSPLANT
     Dosage: 2 MG, BID, ORAL ; 3.6 MG, /D, ORAL ; 3.2 MG, /D, ORAL ; 2.8 MG, /D, ORAL
     Route: 048
     Dates: start: 20080528
  5. MEDROL [Concomitant]
  6. CELLCEPT [Concomitant]
  7. LISINOPRIL [Concomitant]
  8. INCREMIN [Concomitant]
  9. SODIUM CHLORIDE [Concomitant]
  10. SULFAMETHOXAZOLE AND TRIMETHOPRIM [Concomitant]
  11. SIMULECT [Concomitant]

REACTIONS (8)
  - BK VIRUS INFECTION [None]
  - BLOOD CREATINE INCREASED [None]
  - COMPLICATIONS OF TRANSPLANTED KIDNEY [None]
  - CYTOMEGALOVIRUS HEPATITIS [None]
  - EPSTEIN-BARR VIRAEMIA [None]
  - KIDNEY FIBROSIS [None]
  - PRODUCT CONTAMINATION [None]
  - RENAL TUBULAR ATROPHY [None]
